FAERS Safety Report 4936693-X (Version None)
Quarter: 2006Q1

REPORT INFORMATION
  Report Type: 
  Country: None (occurrence: None)
  Receive Date: 20060127
  Receipt Date: 20051112
  Transmission Date: 20060701
  Serious: Yes (Other)
  Sender: FDA-Public Use
  Company Number: 2005156169

PATIENT
  Age: 57 Year
  Sex: Male
  Weight: 95.2554 kg

DRUGS (3)
  1. LYRICA [Suspect]
     Indication: BACK PAIN
     Dosage: 150 MG (75 MG, 2 IN 1 D), ORAL
     Route: 048
     Dates: start: 20051110
  2. MULTIVITAMIN [Concomitant]
  3. DICLOFENAC SODIUM [Concomitant]

REACTIONS (6)
  - CONSTIPATION [None]
  - DIZZINESS [None]
  - DRY MOUTH [None]
  - INSOMNIA [None]
  - PARAESTHESIA [None]
  - VISION BLURRED [None]
